FAERS Safety Report 9781801 (Version 2)
Quarter: 2014Q1

REPORT INFORMATION
  Report Type: Report from Study
  Country: DE (occurrence: DE)
  Receive Date: 20131225
  Receipt Date: 20140324
  Transmission Date: 20141002
  Serious: Yes (Other)
  Sender: FDA-Public Use
  Company Number: DE-BIOGENIDEC-2013BI122479

PATIENT
  Age: 45 Year
  Sex: Female

DRUGS (4)
  1. TYSABRI [Suspect]
     Indication: RELAPSING-REMITTING MULTIPLE SCLEROSIS
     Route: 042
     Dates: start: 20110404, end: 20120925
  2. FINGOLIMOD [Concomitant]
     Route: 048
     Dates: start: 201211
  3. TOLPERISON [Concomitant]
     Indication: MUSCLE SPASTICITY
  4. RIZATRIPTAN [Concomitant]
     Indication: HEADACHE

REACTIONS (1)
  - Basal cell carcinoma [Recovered/Resolved]
